FAERS Safety Report 5596835-2 (Version None)
Quarter: 2008Q1

REPORT INFORMATION
  Report Type: 
  Country: None (occurrence: None)
  Receive Date: 20080119
  Receipt Date: 20080109
  Transmission Date: 20080703
  Serious: Yes (Death)
  Sender: FDA-Public Use
  Company Number: US-PFIZER INC-2008003762

PATIENT
  Age: 59 Year
  Sex: Male

DRUGS (6)
  1. NITROGLICERINA [Suspect]
  2. CODEINE [Suspect]
  3. LISINOPRIL [Suspect]
  4. CALCIUM GLUCONATE [Suspect]
  5. DIPHENHYDRAMINE HCL [Suspect]
  6. ACETAMINOPHEN [Suspect]

REACTIONS (1)
  - COMPLETED SUICIDE [None]
